FAERS Safety Report 19579787 (Version 2)
Quarter: 2021Q3

REPORT INFORMATION
  Report Type: Spontaneous
  Country: JP (occurrence: JP)
  Receive Date: 20210720
  Receipt Date: 20210720
  Transmission Date: 20211014
  Serious: Yes (Death, Hospitalization, Other)
  Sender: FDA-Public Use
  Company Number: JP-SPECGX-T202101703

PATIENT
  Age: 4 Decade
  Sex: Female

DRUGS (9)
  1. METHADONE [Suspect]
     Active Substance: METHADONE HYDROCHLORIDE
     Dosage: 35 MILLIGRAM
     Route: 048
  2. METHADONE [Suspect]
     Active Substance: METHADONE HYDROCHLORIDE
     Indication: CANCER PAIN
     Dosage: 30 MILLIGRAM, QD
     Route: 048
  3. METHADONE [Suspect]
     Active Substance: METHADONE HYDROCHLORIDE
     Dosage: 50 MILLIGRAM
     Route: 048
  4. MORPHINE HYDROCHLORIDE TRIHYDRATE [Suspect]
     Active Substance: MORPHINE HYDROCHLORIDE
     Dosage: 18 MILLIGRAM, QD
     Route: 042
  5. OXYCODONE HYDROCHLORIDE TRIHYDRATE. [Suspect]
     Active Substance: OXYCODONE HYDROCHLORIDE TRIHYDRATE
     Dosage: 312 MILLIGRAM
     Route: 042
  6. HYDROMORPHONE HYDROCHLORIDE. [Concomitant]
     Active Substance: HYDROMORPHONE HYDROCHLORIDE
     Indication: CANCER PAIN
     Dosage: 13.8 MILLIGRAM, QD
     Route: 042
  7. OXYCODONE HYDROCHLORIDE TRIHYDRATE. [Suspect]
     Active Substance: OXYCODONE HYDROCHLORIDE TRIHYDRATE
     Dosage: 168 MILLIGRAM
     Route: 042
  8. MORPHINE HYDROCHLORIDE TRIHYDRATE [Suspect]
     Active Substance: MORPHINE HYDROCHLORIDE
     Indication: CANCER PAIN
     Dosage: 16 MILLIGRAM, QD
     Route: 042
  9. OXYCODONE HYDROCHLORIDE TRIHYDRATE. [Suspect]
     Active Substance: OXYCODONE HYDROCHLORIDE TRIHYDRATE
     Indication: CANCER PAIN
     Dosage: 192 MILLIGRAM, QD
     Route: 042

REACTIONS (4)
  - Hallucination, auditory [Unknown]
  - Uterine cancer [Fatal]
  - Vomiting [Unknown]
  - Pain [Unknown]
